FAERS Safety Report 15183419 (Version 1)
Quarter: 2018Q3

REPORT INFORMATION
  Report Type: Spontaneous
  Country: US (occurrence: US)
  Receive Date: 20180723
  Receipt Date: 20180723
  Transmission Date: 20181010
  Serious: Yes (Other)
  Sender: FDA-Public Use
  Company Number: US-SA-2018SA194749

PATIENT
  Age: 48 Year
  Sex: Female
  Weight: 62.6 kg

DRUGS (5)
  1. NEOSAR [Concomitant]
     Active Substance: CYCLOPHOSPHAMIDE
     Route: 065
  2. TAXOTERE [Suspect]
     Active Substance: DOCETAXEL
     Dosage: 120 MG, EVERY 2 WEEKS
     Route: 042
     Dates: start: 20110318, end: 20110318
  3. TAXOTERE [Suspect]
     Active Substance: DOCETAXEL
     Dosage: 120 UNK, EVERY 2 WEEKS
     Route: 042
     Dates: start: 20110401, end: 20110401
  4. DOXORUBICIN [Concomitant]
     Active Substance: DOXORUBICIN
     Route: 065
  5. TAXOL [Concomitant]
     Active Substance: PACLITAXEL

REACTIONS (2)
  - Psychological trauma [Unknown]
  - Alopecia [Not Recovered/Not Resolved]

NARRATIVE: CASE EVENT DATE: 201012
